FAERS Safety Report 6746498-5 (Version None)
Quarter: 2010Q2

REPORT INFORMATION
  Report Type: 
  Country: None (occurrence: None)
  Receive Date: 20100528
  Receipt Date: 20090330
  Transmission Date: 20101027
  Serious: No
  Sender: FDA-Public Use
  Company Number: US-ASTRAZENECA-2009SE22740

PATIENT
  Sex: Female

DRUGS (3)
  1. PRILOSEC OTC [Suspect]
     Dosage: 1 TABLET, 2 /DAY
     Route: 048
     Dates: start: 20090320
  2. LIPITOR [Concomitant]
     Dosage: UNKNOWN
  3. BLOOD PRESSURE [Concomitant]
     Dosage: UNKNOWN

REACTIONS (4)
  - INAPPROPRIATE SCHEDULE OF DRUG ADMINISTRATION [None]
  - INJURY [None]
  - NAIL INJURY [None]
  - SKIN LACERATION [None]
